FAERS Safety Report 5008622-4 (Version None)
Quarter: 2006Q2

REPORT INFORMATION
  Report Type: 
  Country: None (occurrence: None)
  Receive Date: 20060523
  Receipt Date: 20040901
  Transmission Date: 20061013
  Serious: Yes (Hospitalization, Other)
  Sender: FDA-Public Use
  Company Number: DE-BRISTOL-MYERS SQUIBB COMPANY-13381033

PATIENT
  Age: 32 Year
  Sex: Male
  Weight: 72 kg

DRUGS (8)
  1. VIDEX [Suspect]
     Indication: HIV INFECTION
     Dosage: INTERRUPTED 06-AUG-1997, RESTARTED 28-JUN2001
     Dates: start: 19961013, end: 20040204
  2. ZERIT [Suspect]
     Indication: HIV INFECTION
     Dates: start: 20010628, end: 20040205
  3. SUSTIVA [Suspect]
     Indication: HIV INFECTION
     Dates: start: 20010628
  4. ZIDOVUDINE [Suspect]
     Indication: HIV INFECTION
     Dates: start: 19960626, end: 19980429
  5. SAQUINAVIR [Suspect]
     Indication: HIV INFECTION
     Dosage: INTERRUPTED 06-AUG-1997, RESTARTED 29-APR-1998
     Dates: start: 19960626, end: 20010628
  6. INDINAVIR [Suspect]
     Indication: HIV INFECTION
     Dates: start: 19971013, end: 19980429
  7. LAMIVUDINE/ZIDOVUDINE [Suspect]
     Dosage: DOSAGE = 150 MG / 300 MG
     Dates: start: 20040205
  8. CO-TRIMOXAZOLE [Concomitant]
     Indication: PROPHYLAXIS

REACTIONS (3)
  - GYNAECOMASTIA [None]
  - LIPODYSTROPHY ACQUIRED [None]
  - WEIGHT INCREASED [None]
